FAERS Safety Report 11998374 (Version 1)
Quarter: 2016Q1

REPORT INFORMATION
  Report Type: Spontaneous
  Country: US (occurrence: None)
  Receive Date: 20160203
  Receipt Date: 20160203
  Transmission Date: 20160526
  Serious: No
  Sender: FDA-Public Use
  Company Number: None

PATIENT
  Age: 77 Year
  Sex: Male
  Weight: 54.43 kg

DRUGS (3)
  1. DORZOLAMIDE HCL/TIMOLOL MALEATE OPTHALMIC SOLUTION INDOCO REMEDIES LTD. WATSON PHAMA INC . [Suspect]
     Active Substance: DORZOLAMIDE HYDROCHLORIDE\TIMOLOL MALEATE
     Indication: GLAUCOMA
     Dosage: 22.3MG/6.8 MG PER ML. 1 DROP, TWICE DAILY, EYE DROP
     Dates: start: 20151220, end: 20151225
  2. LATANOPROST. [Concomitant]
     Active Substance: LATANOPROST
  3. MULTIVITAMIN [Concomitant]
     Active Substance: VITAMINS

REACTIONS (5)
  - Ocular hyperaemia [None]
  - Visual impairment [None]
  - Product substitution issue [None]
  - Product container seal issue [None]
  - Vision blurred [None]

NARRATIVE: CASE EVENT DATE: 20151220
